FAERS Safety Report 6970250-9 (Version None)
Quarter: 2010Q3

REPORT INFORMATION
  Report Type: 
  Country: None (occurrence: None)
  Receive Date: 20100908
  Receipt Date: 20100825
  Transmission Date: 20110219
  Serious: Yes (Other)
  Sender: FDA-Public Use
  Company Number: PHHY2010FR57392

PATIENT
  Age: 90 Year
  Sex: Female

DRUGS (1)
  1. TAREG [Suspect]
     Indication: HYPERTENSION
     Dosage: 80 MG, QD
     Route: 048

REACTIONS (2)
  - FOLATE DEFICIENCY [None]
  - PERNICIOUS ANAEMIA [None]
